FAERS Safety Report 9402834 (Version 1)
Quarter: 2013Q3

REPORT INFORMATION
  Report Type: Spontaneous
  Country: US (occurrence: None)
  Receive Date: 20130712
  Receipt Date: 20130712
  Transmission Date: 20140515
  Serious: Yes (Hospitalization)
  Sender: FDA-Public Use
  Company Number: ACO_37146_2013

PATIENT
  Age: 64 Year
  Sex: Female

DRUGS (10)
  1. AMPYRA (DALFAMPRIDINE) TABLET, 10MG [Suspect]
     Indication: MULTIPLE SCLEROSIS
     Route: 048
     Dates: start: 201211
  2. AMPYRA (DALFAMPRIDINE) TABLET, 10MG [Suspect]
     Indication: GAIT DISTURBANCE
     Route: 048
     Dates: start: 201211
  3. VITAMINS [Concomitant]
  4. BETASERON (ALBUMIN HUMAN, GLUCOSE, INTERFERON BETA) [Concomitant]
  5. ROBAXIN (METHOCARBAMOL) [Concomitant]
  6. KLOR-CON (POTASSIUM CHLORIDE) [Concomitant]
  7. AMANTADINE (AMANTADINE HYDROCHLORIDE) [Concomitant]
  8. DIAZEPAM (DIAZEPAM) [Concomitant]
  9. CARVEDILOL (CARVEDILOL) [Concomitant]
  10. PERCOCET [Concomitant]

REACTIONS (3)
  - Myocardial infarction [None]
  - Fall [None]
  - Dizziness [None]
